FAERS Safety Report 8303785-7 (Version None)
Quarter: 2012Q2

REPORT INFORMATION
  Report Type: 
  Country: None (occurrence: None)
  Receive Date: 20120418
  Receipt Date: 20120330
  Transmission Date: 20120825
  Serious: Yes (Other)
  Sender: FDA-Public Use
  Company Number: 2012PROUSA01184

PATIENT
  Age: 83 Year
  Sex: Male
  Weight: 79.8 kg

DRUGS (10)
  1. LACTULOSE [Concomitant]
  2. CALCIUM CARBONATE [Concomitant]
  3. OMEPRAZOLE [Concomitant]
  4. POTASSIUM BICARBONATE (POTASSIUM BICARBONATE) [Concomitant]
  5. SPRIONOLACTONE (SPIRONOLACTONE) [Concomitant]
  6. RESTORIL /00054301/ (CHLORMEZANONE) [Concomitant]
  7. LASIX [Concomitant]
  8. PINDOLOL (PINDOLOL) TABLET [Concomitant]
  9. PROVENGE [Suspect]
     Indication: PROSTATE CANCER METASTATIC
     Dosage: 250 ML, SINGLE, INTRAVENOUS
     Route: 042
     Dates: start: 20120309, end: 20120309
  10. CHLORIDE (CHLORIDE) [Concomitant]

REACTIONS (9)
  - WEIGHT DECREASED [None]
  - ARTHRALGIA [None]
  - BLOOD BILIRUBIN INCREASED [None]
  - THROMBOCYTOPENIA [None]
  - CEREBROVASCULAR ACCIDENT [None]
  - RADIATION SKIN INJURY [None]
  - DECREASED APPETITE [None]
  - FATIGUE [None]
  - MUSCULOSKELETAL DISCOMFORT [None]
